FAERS Safety Report 6734576-6 (Version None)
Quarter: 2010Q2

REPORT INFORMATION
  Report Type: 
  Country: None (occurrence: None)
  Receive Date: 20100520
  Receipt Date: 20100409
  Transmission Date: 20101027
  Serious: No
  Sender: FDA-Public Use
  Company Number: US-ALLERGAN-1004655US

PATIENT
  Age: 66 Year
  Sex: Male

DRUGS (3)
  1. SANCTURA XR [Suspect]
     Indication: HYPERTONIC BLADDER
     Dosage: 60 MG, SINGLE
     Route: 048
     Dates: start: 20100409, end: 20100409
  2. COUMADIN [Concomitant]
  3. ATENOLOL [Concomitant]

REACTIONS (5)
  - CONSTIPATION [None]
  - DRUG INEFFECTIVE [None]
  - FREQUENT BOWEL MOVEMENTS [None]
  - MICTURITION URGENCY [None]
  - POLLAKIURIA [None]
